FAERS Safety Report 6425276-0 (Version None)
Quarter: 2009Q4

REPORT INFORMATION
  Report Type: 
  Country: None (occurrence: None)
  Receive Date: 20091102
  Receipt Date: 20091102
  Transmission Date: 20100525
  Serious: No
  Sender: FDA-Public Use
  Company Number: None

PATIENT
  Sex: Female
  Weight: 64.8644 kg

DRUGS (2)
  1. PEG-INTRON [Suspect]
     Indication: HEPATITIS C
     Dosage: 120 MCG/0.5 M ONCE Q WEEK SQ
     Route: 058
     Dates: start: 20091016, end: 20091029
  2. RIBAPAK 400 MG TAB/ 600 MG TAB DSM PHARMACEUTICALS [Suspect]
     Indication: HEPATITIS C
     Dosage: 400 MG QAM; 600MGQPM 400MGQAM;600MG QPM PO
     Route: 048
     Dates: start: 20091016, end: 20091028

REACTIONS (5)
  - DIZZINESS [None]
  - HYPERTENSION [None]
  - NAUSEA [None]
  - PAIN IN EXTREMITY [None]
  - RENAL PAIN [None]
